FAERS Safety Report 10069333 (Version 1)
Quarter: 2014Q2

REPORT INFORMATION
  Report Type: Spontaneous
  Country: US (occurrence: US)
  Receive Date: 20140409
  Receipt Date: 20140409
  Transmission Date: 20141212
  Serious: Yes (Hospitalization)
  Sender: FDA-Public Use
  Company Number: US-AMGEN INC.-USASP2014024863

PATIENT
  Age: 43 Year
  Sex: Male

DRUGS (1)
  1. ENBREL [Suspect]
     Indication: ANKYLOSING SPONDYLITIS
     Dosage: 50 MG, QWK
     Route: 065
     Dates: start: 20121010, end: 20131025

REACTIONS (16)
  - Osteoarthritis [Recovered/Resolved]
  - Back pain [Recovered/Resolved]
  - Burning sensation [Recovered/Resolved]
  - Faecal incontinence [Recovered/Resolved]
  - Renal failure [Recovered/Resolved]
  - Urinary incontinence [Recovered/Resolved]
  - Gout [Recovered/Resolved]
  - Deep vein thrombosis [Recovered/Resolved]
  - Cystitis [Recovered/Resolved]
  - Bedridden [Recovered/Resolved]
  - Back injury [Unknown]
  - Muscle atrophy [Unknown]
  - Gait disturbance [Unknown]
  - Hypokinesia [Not Recovered/Not Resolved]
  - Nerve injury [Not Recovered/Not Resolved]
  - Neuropathy peripheral [Not Recovered/Not Resolved]
